FAERS Safety Report 12120121 (Version 1)
Quarter: 2016Q1

REPORT INFORMATION
  Report Type: Report from Study
  Country: DE (occurrence: DE)
  Receive Date: 20160226
  Receipt Date: 20160226
  Transmission Date: 20160526
  Serious: Yes (Other)
  Sender: FDA-Public Use
  Company Number: PHHO2007DE20728

PATIENT
  Age: 32 Year
  Sex: Female

DRUGS (1)
  1. GILENYA [Suspect]
     Active Substance: FINGOLIMOD HYDROCHLORIDE
     Indication: MULTIPLE SCLEROSIS
     Dosage: FOETAL DRUG EXP.VIA FATHER RECEIVING 0.5 MG
     Route: 048

REACTIONS (3)
  - Limb reduction defect [Unknown]
  - Exposure via father [Unknown]
  - Foetal disorder [Unknown]
